FAERS Safety Report 5989927-7 (Version None)
Quarter: 2008Q4

REPORT INFORMATION
  Report Type: 
  Country: None (occurrence: None)
  Receive Date: 20081208
  Receipt Date: 20081202
  Transmission Date: 20090506
  Serious: Yes (Death)
  Sender: FDA-Public Use
  Company Number: ADR2862008

PATIENT
  Sex: Male

DRUGS (1)
  1. CITALOPRAM (UNKNOWN MFR) FILM-COATED TABLETS, 40 MG [Suspect]
     Dosage: 40 MG DAILY
     Route: 048

REACTIONS (1)
  - COMPLETED SUICIDE [None]
